FAERS Safety Report 16023223 (Version 1)
Quarter: 2019Q1

REPORT INFORMATION
  Report Type: Spontaneous
  Country: US (occurrence: US)
  Receive Date: 20190301
  Receipt Date: 20190301
  Transmission Date: 20190418
  Serious: No
  Sender: FDA-Public Use
  Company Number: US-GLAXOSMITHKLINE-US2019034210

PATIENT
  Sex: Male

DRUGS (2)
  1. BREO ELLIPTA [Suspect]
     Active Substance: FLUTICASONE FUROATE\VILANTEROL TRIFENATATE
     Indication: PRODUCT USED FOR UNKNOWN INDICATION
     Dosage: 1 PUFF(S), 1D
     Route: 055
     Dates: start: 201901
  2. MELATONIN [Interacting]
     Active Substance: MELATONIN
     Indication: SLEEP DISORDER
     Dosage: UNK

REACTIONS (3)
  - Constipation [Unknown]
  - Drug interaction [Unknown]
  - Insomnia [Unknown]
